FAERS Safety Report 9654428 (Version 3)
Quarter: 2014Q4

REPORT INFORMATION
  Report Type: Report from Study
  Country: AR (occurrence: AR)
  Receive Date: 20131029
  Receipt Date: 20141003
  Transmission Date: 20150529
  Serious: Yes (Other)
  Sender: FDA-Public Use
  Company Number: PHHY2013AR121856

PATIENT
  Sex: Female

DRUGS (4)
  1. TRILEPTAL [Suspect]
     Active Substance: OXCARBAZEPINE
     Indication: EPILEPSY
     Dosage: 2 DF, DAILY
     Route: 048
  2. PREGABALIN. [Concomitant]
     Active Substance: PREGABALIN
     Indication: SPINAL OPERATION
     Dosage: UNK UKN, UNK
     Route: 065
  3. RIVOTRIL [Concomitant]
     Active Substance: CLONAZEPAM
     Indication: INSOMNIA
     Dosage: UNK UKN, UNK
     Route: 065
  4. TRILEPTAL [Suspect]
     Active Substance: OXCARBAZEPINE
     Dosage: 1 DF, DAILY
     Route: 065

REACTIONS (12)
  - Memory impairment [Not Recovered/Not Resolved]
  - Diarrhoea [Not Recovered/Not Resolved]
  - Gastric disorder [Unknown]
  - Loss of consciousness [Not Recovered/Not Resolved]
  - Abasia [Recovering/Resolving]
  - Abdominal pain [Not Recovered/Not Resolved]
  - Neoplasm malignant [Not Recovered/Not Resolved]
  - Intervertebral disc protrusion [Unknown]
  - Anxiety [Unknown]
  - Incorrect dose administered [Unknown]
  - Vomiting [Unknown]
  - Epilepsy [Not Recovered/Not Resolved]
